FAERS Safety Report 18626647 (Version 1)
Quarter: 2020Q4

REPORT INFORMATION
  Report Type: Spontaneous
  Country: FR (occurrence: FR)
  Receive Date: 20201217
  Receipt Date: 20201217
  Transmission Date: 20210114
  Serious: Yes (Death, Hospitalization, Other)
  Sender: FDA-Public Use
  Company Number: FR-ALVOGEN-2020-ALVOGEN-115478

PATIENT
  Sex: Female

DRUGS (6)
  1. CODEINE [Suspect]
     Active Substance: CODEINE
     Indication: FEELING HOT
  2. PARACETAMOL [Suspect]
     Active Substance: ACETAMINOPHEN
     Indication: FEELING HOT
  3. CLINDAMYCIN. [Suspect]
     Active Substance: CLINDAMYCIN
     Indication: TOXIC SHOCK SYNDROME STREPTOCOCCAL
  4. METRONIDAZOLE. [Suspect]
     Active Substance: METRONIDAZOLE
     Indication: ABDOMINAL SEPSIS
  5. CEFOTAXIME [Suspect]
     Active Substance: CEFOTAXIME SODIUM
     Indication: ABDOMINAL SEPSIS
  6. GENTAMICIN. [Concomitant]
     Active Substance: GENTAMICIN
     Indication: POSTOPERATIVE CARE

REACTIONS (12)
  - Respiratory failure [Unknown]
  - Pelvic pain [Unknown]
  - Multiple organ dysfunction syndrome [Fatal]
  - Disseminated intravascular coagulation [Unknown]
  - Neutropenia [Unknown]
  - Necrosis [Unknown]
  - Abdominal sepsis [Unknown]
  - Renal failure [Unknown]
  - Toxic shock syndrome streptococcal [Fatal]
  - Condition aggravated [Fatal]
  - Septic shock [Fatal]
  - Hyperleukocytosis [Unknown]
